FAERS Safety Report 4276413-8 (Version None)
Quarter: 2004Q1

REPORT INFORMATION
  Report Type: 
  Country: None (occurrence: None)
  Receive Date: 20040116
  Receipt Date: 20040108
  Transmission Date: 20041129
  Serious: Yes (Hospitalization)
  Sender: FDA-Public Use
  Company Number: JP-JNJFOC-20031202794

PATIENT
  Age: 76 Year
  Sex: Female

DRUGS (5)
  1. ITRIZOLE (ITRACONAZOLE) UNSPECIFIED [Suspect]
     Indication: ONYCHOMYCOSIS
     Dosage: 100 MG, IN 1 DAY ORAL
     Route: 048
     Dates: start: 20031128, end: 20031204
  2. CANDESARTAN CILEXETIL(CANDESARTAN CILEXETIL) [Concomitant]
  3. GLICLAZIDE (GLICLAZIDE) [Concomitant]
  4. SODIUM RISEDRONATE HYDRATE (RISEDRONATE SODIUM) [Concomitant]
  5. ALFACALCIDOL (ALFACALCIDOL) [Concomitant]

REACTIONS (5)
  - ERYTHEMA MULTIFORME [None]
  - PIGMENTATION DISORDER [None]
  - PRURITUS [None]
  - PYREXIA [None]
  - SKIN WARM [None]
